FAERS Safety Report 7888445-9 (Version None)
Quarter: 2011Q4

REPORT INFORMATION
  Report Type: 
  Country: None (occurrence: None)
  Receive Date: 20111103
  Receipt Date: 20111023
  Transmission Date: 20120403
  Serious: Yes (Death)
  Sender: FDA-Public Use
  Company Number: DZ-ROCHE-1006531

PATIENT
  Sex: Female

DRUGS (6)
  1. VINORELBINE TARTRATE [Suspect]
     Indication: BREAST CANCER
     Route: 042
     Dates: start: 20091213
  2. ZOLEDRONIC ACID [Suspect]
     Indication: BREAST CANCER
     Route: 042
     Dates: start: 20090323, end: 20091203
  3. HERCEPTIN [Suspect]
     Indication: BREAST CANCER
     Dosage: 6-8 MG/KG PER HOUR
     Route: 042
     Dates: start: 20100207
  4. PACLITAXEL [Suspect]
     Indication: BREAST CANCER
     Route: 042
     Dates: start: 20090323, end: 20091203
  5. XELODA [Suspect]
     Indication: BREAST CANCER
     Route: 048
     Dates: start: 20091213
  6. AVASTIN [Suspect]
     Indication: BREAST CANCER
     Route: 042
     Dates: start: 20090323, end: 20091203

REACTIONS (1)
  - DISEASE PROGRESSION [None]
